FAERS Safety Report 8118244-4 (Version None)
Quarter: 2012Q1

REPORT INFORMATION
  Report Type: 
  Country: None (occurrence: None)
  Receive Date: 20120201
  Receipt Date: 20120118
  Transmission Date: 20120608
  Serious: Yes (Hospitalization, Other)
  Sender: FDA-Public Use
  Company Number: 1000027552

PATIENT
  Age: 45 Year
  Sex: Female

DRUGS (2)
  1. FEMOSTON (ESTRADIOL, DYDROGESTERONE) [Suspect]
     Dosage: 1MG/10MG, ORAL
     Route: 048
     Dates: start: 20120106, end: 20120113
  2. CITALOPRAM HYDROBROMIDE [Suspect]
     Indication: DEPRESSION
     Dosage: OVERDOSE: UNKNOWN AMOUNT OF CITALOPRAM

REACTIONS (4)
  - DRUG INTERACTION [None]
  - OVERDOSE [None]
  - MYALGIA [None]
  - BONE PAIN [None]
